FAERS Safety Report 4289446-2 (Version None)
Quarter: 2004Q1

REPORT INFORMATION
  Report Type: 
  Country: None (occurrence: None)
  Receive Date: 20040206
  Receipt Date: 20040127
  Transmission Date: 20041129
  Serious: Yes (Other)
  Sender: FDA-Public Use
  Company Number: US-JNJFOC-20031201437

PATIENT
  Age: 56 Year
  Sex: Female
  Weight: 70.7611 kg

DRUGS (6)
  1. REMICADE [Suspect]
     Indication: RHEUMATOID ARTHRITIS
     Dosage: 8 MG/KG, INTRAVENOUS
     Route: 042
     Dates: start: 20031008
  2. METHOTREXATE [Concomitant]
  3. CELEBREX (CELEBREX) [Concomitant]
  4. NEXIUM [Concomitant]
  5. ACTONEL [Concomitant]
  6. LEXAPRO (ALL OTHER THERAPEUTIC PRODUCTS) [Concomitant]

REACTIONS (1)
  - TUBERCULIN TEST POSITIVE [None]
